FAERS Safety Report 8139059-7 (Version None)
Quarter: 2012Q1

REPORT INFORMATION
  Report Type: 
  Country: None (occurrence: None)
  Receive Date: 20120215
  Receipt Date: 20120130
  Transmission Date: 20120608
  Serious: Yes (Hospitalization)
  Sender: FDA-Public Use
  Company Number: FR-PFIZER INC-2003183469FR

PATIENT
  Age: 67 Year
  Sex: Male

DRUGS (14)
  1. RULID [Suspect]
     Dosage: 150 MG, BID
     Route: 048
     Dates: start: 20030908, end: 20030912
  2. PRAVASTATIN [Suspect]
     Dosage: 40 MG, QD
     Route: 048
     Dates: start: 20020101, end: 20030912
  3. LORMETAZEPAM [Suspect]
     Dosage: 2 MG, QD
     Route: 048
     Dates: start: 20010908, end: 20030912
  4. SURMONTIL [Suspect]
     Dosage: 100.0 MG, BID
     Route: 048
     Dates: start: 20030414, end: 20030912
  5. PRAVASTATIN [Concomitant]
     Route: 048
  6. PANTOPRAZOLE [Suspect]
     Dosage: 40 MG, QD
     Route: 048
     Dates: start: 20030414, end: 20030912
  7. MUCOMYST [Suspect]
     Dosage: 200 MG, TID
     Dates: start: 20030908, end: 20030912
  8. BISOPROLOL FUMARATE [Suspect]
     Dosage: 2.5 MG, BID
     Route: 048
     Dates: start: 20020101, end: 20030912
  9. METFORMIN HCL [Suspect]
     Dosage: 280.0 MG, BID
     Route: 048
     Dates: start: 20030414, end: 20030912
  10. REPAGLINIDE [Suspect]
     Dosage: 2 MG, PRN
     Route: 048
     Dates: start: 20030414, end: 20030912
  11. ZESTRIL [Suspect]
     Dosage: 5 MG, BID
     Route: 048
     Dates: start: 20020101, end: 20030912
  12. OXAZEPAM [Suspect]
     Dosage: 50 MG, BID
     Route: 048
     Dates: start: 20030414, end: 20030912
  13. ACETAMINOPHEN [Suspect]
     Dosage: UNK, QID
     Route: 048
     Dates: start: 20030908, end: 20030912
  14. PREVISCAN [Suspect]
     Dosage: UNK, TID
     Route: 048
     Dates: start: 20020101, end: 20030912

REACTIONS (1)
  - RHABDOMYOLYSIS [None]
